FAERS Safety Report 5328278-0 (Version None)
Quarter: 2007Q2

REPORT INFORMATION
  Report Type: 
  Country: None (occurrence: None)
  Receive Date: 20070518
  Receipt Date: 20070515
  Transmission Date: 20071010
  Serious: Yes (Hospitalization)
  Sender: FDA-Public Use
  Company Number: PHEH2007US04534

PATIENT
  Age: 65 Year
  Sex: Female

DRUGS (9)
  1. ZELNORM [Suspect]
     Indication: IRRITABLE BOWEL SYNDROME
     Dosage: 6 MG, BID
     Route: 048
     Dates: start: 20060301, end: 20060401
  2. ZELNORM [Suspect]
     Dosage: 6 MG, QD
     Route: 048
     Dates: start: 20060401, end: 20070401
  3. VYTORIN [Concomitant]
     Indication: BLOOD CHOLESTEROL INCREASED
  4. PLAVIX [Concomitant]
     Indication: BLOOD CHOLESTEROL INCREASED
     Dates: start: 20000101
  5. ASA (BABY) [Concomitant]
     Dates: start: 20010101
  6. ENAPRIL [Concomitant]
     Indication: HYPERTENSION
  7. METFORMIN HCL [Concomitant]
     Indication: DIABETES MELLITUS
  8. LEVOTHYROXINE SODIUM [Concomitant]
     Indication: THYROID DISORDER
     Dates: start: 20060101
  9. NEXIUM [Concomitant]
     Indication: GASTROOESOPHAGEAL REFLUX DISEASE

REACTIONS (4)
  - ANGINA PECTORIS [None]
  - DYSPNOEA [None]
  - PALPITATIONS [None]
  - THYROID DISORDER [None]
